FAERS Safety Report 9601873 (Version 2)
Quarter: 2013Q4

REPORT INFORMATION
  Report Type: Spontaneous
  Country: GB (occurrence: None)
  Receive Date: 20131002
  Receipt Date: 20131015
  Transmission Date: 20140711
  Serious: Yes (Hospitalization)
  Sender: FDA-Public Use
  Company Number: SYM-2013-11137

PATIENT
  Age: 65 Year
  Sex: Male

DRUGS (11)
  1. 5 FU [Suspect]
     Indication: COLORECTAL CANCER METASTATIC
     Dates: start: 20121001, end: 20121001
  2. IRINOTECAN [Suspect]
     Indication: COLORECTAL CANCER METASTATIC
     Dates: start: 20121001, end: 20121001
  3. LEUCOVORIN [Suspect]
     Indication: COLORECTAL CANCER METASTATIC
     Route: 041
     Dates: start: 20121001, end: 20121001
  4. CALCIUM CHANNEL BLOCKERS [Concomitant]
  5. LOPERAMIDE (LOPERAMIDE) [Concomitant]
  6. VITAMIN B12 (CYANOCOBALAMIN) [Concomitant]
  7. LACULOSE (LACTULOSE) [Concomitant]
  8. STREPSILS (STREPSILS) [Concomitant]
  9. ANTIBIOTICS (ANTIBIOTICS) [Concomitant]
  10. MACROGOL (MACROGOL) [Concomitant]
  11. AFLIBERCEPT [Suspect]
     Route: 041
     Dates: start: 20121001, end: 20121001

REACTIONS (3)
  - Neutropenic infection [None]
  - Upper respiratory tract infection [None]
  - Sepsis [None]
